FAERS Safety Report 8422273-0 (Version None)
Quarter: 2012Q2

REPORT INFORMATION
  Report Type: 
  Country: None (occurrence: None)
  Receive Date: 20120608
  Receipt Date: 20120530
  Transmission Date: 20120825
  Serious: Yes (Hospitalization, Other)
  Sender: FDA-Public Use
  Company Number: US-ASTRAZENECA-2010SE23953

PATIENT
  Age: 44 Year
  Sex: Female
  Weight: 54.4 kg

DRUGS (11)
  1. TOPAMAX [Concomitant]
     Indication: MIGRAINE
  2. SEROQUEL [Suspect]
     Route: 048
  3. SEROQUEL [Suspect]
     Route: 048
     Dates: start: 20100201, end: 20100401
  4. SEROQUEL [Suspect]
     Route: 048
     Dates: start: 20100401, end: 20100401
  5. LEVOTHYROXINE SODIUM [Concomitant]
     Indication: THYROID DISORDER
     Route: 048
  6. AMITRYPTILLINE [Concomitant]
  7. SEROQUEL [Suspect]
     Route: 048
  8. SEROQUEL [Suspect]
     Route: 048
     Dates: start: 20100401
  9. SEROQUEL [Suspect]
     Route: 048
  10. KLONOPIN [Concomitant]
  11. SEROQUEL [Suspect]
     Indication: SLEEP DISORDER
     Dosage: 50 MG ONE TABLET IN THE MORNING AND ONE TABLET IN THE EVENING
     Route: 048

REACTIONS (9)
  - INFLUENZA [None]
  - OFF LABEL USE [None]
  - TENDON RUPTURE [None]
  - THERAPEUTIC RESPONSE UNEXPECTED [None]
  - DRUG DOSE OMISSION [None]
  - WEIGHT INCREASED [None]
  - INSOMNIA [None]
  - DRUG INEFFECTIVE FOR UNAPPROVED INDICATION [None]
  - SOMNAMBULISM [None]
